FAERS Safety Report 20895262 (Version 2)
Quarter: 2022Q2

REPORT INFORMATION
  Report Type: Spontaneous
  Country: US (occurrence: US)
  Receive Date: 20220531
  Receipt Date: 20220622
  Transmission Date: 20220721
  Serious: Yes (Other)
  Sender: FDA-Public Use
  Company Number: US-INTRA-CELLULAR THERAPIES, INC.-2022ICT00530

PATIENT
  Age: 45 Year
  Sex: Female
  Weight: 101.13 kg

DRUGS (2)
  1. CAPLYTA [Suspect]
     Active Substance: LUMATEPERONE
     Indication: Bipolar II disorder
     Dosage: 42 MG, 1X/DAY
     Route: 048
     Dates: start: 20220420, end: 20220424
  2. NALTREXONE [Concomitant]
     Active Substance: NALTREXONE

REACTIONS (3)
  - Suicidal ideation [Unknown]
  - Irritability [Unknown]
  - Depression [Unknown]

NARRATIVE: CASE EVENT DATE: 20220401
